FAERS Safety Report 5719899-1 (Version None)
Quarter: 2008Q2

REPORT INFORMATION
  Report Type: 
  Country: None (occurrence: None)
  Receive Date: 20080428
  Receipt Date: 20080130
  Transmission Date: 20081010
  Serious: No
  Sender: FDA-Public Use
  Company Number: A0706373A

PATIENT
  Age: 45 Year
  Sex: Female

DRUGS (2)
  1. ZOFRAN [Suspect]
     Indication: VOMITING IN PREGNANCY
     Dosage: 8MG TWICE PER DAY
     Route: 048
     Dates: start: 20071201
  2. NO CONCURRENT MEDICATION [Concomitant]

REACTIONS (2)
  - CONSTIPATION [None]
  - DRUG EXPOSURE DURING PREGNANCY [None]
